FAERS Safety Report 6614518-4 (Version None)
Quarter: 2010Q1

REPORT INFORMATION
  Report Type: 
  Country: None (occurrence: None)
  Receive Date: 20100304
  Receipt Date: 20100304
  Transmission Date: 20100710
  Serious: Yes (Hospitalization)
  Sender: FDA-Public Use
  Company Number: None

PATIENT
  Age: 61 Year
  Sex: Male
  Weight: 87.82 kg

DRUGS (1)
  1. SULFAMETHOXAZOLE AND TRIMETHOPRIM [Suspect]
     Indication: CELLULITIS
     Dosage: 2 TAB BID PO
     Route: 048
     Dates: start: 20100209, end: 20100218

REACTIONS (3)
  - BLOOD CREATININE INCREASED [None]
  - BLOOD UREA INCREASED [None]
  - HYPERKALAEMIA [None]
